FAERS Safety Report 25751197 (Version 1)
Quarter: 2025Q3

REPORT INFORMATION
  Report Type: Spontaneous
  Country: US (occurrence: US)
  Receive Date: 20250902
  Receipt Date: 20250902
  Transmission Date: 20251020
  Serious: Yes (Other)
  Sender: COOPERSURGICAL
  Company Number: US-COOPERSURGICAL, INC.-2025CPS006245

PATIENT
  Age: 29 Year
  Sex: Female
  Weight: 71.202 kg

DRUGS (1)
  1. PARAGARD T 380A [Suspect]
     Active Substance: COPPER
     Indication: Contraception
     Route: 015
     Dates: start: 20110915

REACTIONS (16)
  - Surgery [Recovered/Resolved]
  - Uterine leiomyoma [Unknown]
  - Device breakage [Recovered/Resolved]
  - Foreign body in urogenital tract [Recovered/Resolved]
  - Complication of device removal [Recovered/Resolved]
  - Embedded device [Not Recovered/Not Resolved]
  - Cervicitis [Unknown]
  - Vaginal discharge [Recovered/Resolved]
  - Bacterial vaginosis [Recovered/Resolved]
  - Bacterial vulvovaginitis [Recovered/Resolved]
  - Heavy menstrual bleeding [Unknown]
  - Dyspareunia [Unknown]
  - Pelvic pain [Unknown]
  - Abnormal uterine bleeding [Unknown]
  - Intermenstrual bleeding [Unknown]
  - Menstruation irregular [Unknown]

NARRATIVE: CASE EVENT DATE: 20110914
